FAERS Safety Report 16013472 (Version 6)
Quarter: 2019Q2

REPORT INFORMATION
  Report Type: Spontaneous
  Country: JP (occurrence: JP)
  Receive Date: 20190227
  Receipt Date: 20190625
  Transmission Date: 20190711
  Serious: Yes (Death, Hospitalization, Other)
  Sender: FDA-Public Use
  Company Number: JP-ASTRAZENECA-2019SE32047

PATIENT
  Age: 24302 Day
  Sex: Male
  Weight: 60 kg

DRUGS (11)
  1. NOVAMIN [Concomitant]
     Route: 048
     Dates: start: 20190107, end: 20190215
  2. LIPITOR [Concomitant]
     Active Substance: ATORVASTATIN CALCIUM
     Route: 048
     Dates: end: 20190215
  3. CLARITHROMYCIN. [Concomitant]
     Active Substance: CLARITHROMYCIN
     Dosage: DOSE UNKNOWN
     Route: 065
  4. AMBROXOL HYDROCHLORIDE [Concomitant]
     Active Substance: AMBROXOL HYDROCHLORIDE
     Dosage: DOSE UNKNOWN
     Route: 065
  5. NEXIUM [Concomitant]
     Active Substance: ESOMEPRAZOLE MAGNESIUM
     Indication: PROPHYLAXIS AGAINST GASTROINTESTINAL ULCER
     Route: 048
     Dates: start: 20180128, end: 20190215
  6. CODEINE PHOSPHATE [Concomitant]
     Active Substance: CODEINE PHOSPHATE
     Route: 048
     Dates: start: 20181227, end: 20190215
  7. CANAGLU [Concomitant]
     Active Substance: CANAGLIFLOZIN
     Route: 048
     Dates: end: 20190215
  8. FLAVERIC [Concomitant]
     Active Substance: BENPROPERINE PHOSPHATE
     Dosage: DOSE UNKNOWN
     Route: 065
  9. METGLUCO [Concomitant]
     Active Substance: METFORMIN HYDROCHLORIDE
     Route: 048
     Dates: end: 20190215
  10. TAGRISSO [Suspect]
     Active Substance: OSIMERTINIB
     Indication: NON-SMALL CELL LUNG CANCER
     Route: 048
     Dates: start: 20181228, end: 20190122
  11. OLMETEC [Concomitant]
     Active Substance: OLMESARTAN MEDOXOMIL
     Route: 048
     Dates: end: 20190215

REACTIONS (12)
  - Metastases to bone [Unknown]
  - Cancer pain [Unknown]
  - Cardiac arrest [Fatal]
  - Malignant neoplasm progression [Fatal]
  - Metastases to lymph nodes [Unknown]
  - Pneumonia bacterial [Recovering/Resolving]
  - Nausea [Unknown]
  - Pleural effusion [Unknown]
  - Interstitial lung disease [Fatal]
  - Decreased appetite [Recovering/Resolving]
  - Lymphangiosis carcinomatosa [Unknown]
  - Pericardial effusion [Unknown]

NARRATIVE: CASE EVENT DATE: 20181231
